FAERS Safety Report 5006735-4 (Version None)
Quarter: 2006Q2

REPORT INFORMATION
  Report Type: 
  Country: None (occurrence: None)
  Receive Date: 20060516
  Receipt Date: 20060510
  Transmission Date: 20061013
  Serious: Yes (Death)
  Sender: FDA-Public Use
  Company Number: GBWYE615510MAY06

PATIENT
  Age: 81 Year
  Sex: Female

DRUGS (6)
  1. IBUPROFEN [Suspect]
     Indication: PAIN IN EXTREMITY
     Dosage: 400 MG 3X PER 1 DAY ORAL
     Route: 048
     Dates: end: 20060425
  2. DICLOFENAC (DICLOFENAC, ,0) [Suspect]
     Indication: PAIN
     Dosage: 75 MG 2X PER 1 DAY ORAL
     Route: 048
     Dates: end: 20060423
  3. CITALOPRAM HYDROBROMIDE [Concomitant]
  4. ANASTROZOLE [Concomitant]
  5. LORMETAZEPAM (LORMETAZEPAM) [Concomitant]
  6. TRIMETHOPRIM [Concomitant]

REACTIONS (4)
  - ASTHENIA [None]
  - GASTROINTESTINAL HAEMORRHAGE [None]
  - LETHARGY [None]
  - MYOCARDIAL INFARCTION [None]
